FAERS Safety Report 8194585 (Version 3)
Quarter: 2013Q1

REPORT INFORMATION
  Report Type: Spontaneous
  Country: US (occurrence: US)
  Receive Date: 20111024
  Receipt Date: 20130318
  Transmission Date: 20140127
  Serious: No
  Sender: FDA-Public Use
  Company Number: US-BIOGENIDEC-2011BI039720

PATIENT
  Age: 56 None
  Sex: Female

DRUGS (4)
  1. TYSABRI [Suspect]
     Indication: MULTIPLE SCLEROSIS
     Route: 042
     Dates: start: 20100623
  2. TYLENOL [Concomitant]
     Indication: PREMEDICATION
  3. BENADRYL [Concomitant]
     Indication: PREMEDICATION
  4. 4-AP COMPOUNDED VERSION OF AMPYRA [Concomitant]
     Indication: MULTIPLE SCLEROSIS
     Dates: start: 201107

REACTIONS (17)
  - Foot fracture [Recovered/Resolved]
  - Haematochezia [Not Recovered/Not Resolved]
  - Haemorrhoids [Not Recovered/Not Resolved]
  - Arthritis [Unknown]
  - Nail discolouration [Recovered/Resolved]
  - Fall [Recovered/Resolved]
  - Psoriasis [Not Recovered/Not Resolved]
  - Onychomycosis [Recovered/Resolved]
  - Nail psoriasis [Not Recovered/Not Resolved]
  - Skin disorder [Unknown]
  - Sleep apnoea syndrome [Not Recovered/Not Resolved]
  - Fear [Not Recovered/Not Resolved]
  - Hyperkeratosis [Not Recovered/Not Resolved]
  - Dry skin [Not Recovered/Not Resolved]
  - Headache [Recovered/Resolved]
  - Asthenia [Recovered/Resolved]
  - Multiple sclerosis relapse [Recovered/Resolved]
